FAERS Safety Report 9821139 (Version 1)
Quarter: 2014Q1

REPORT INFORMATION
  Report Type: Spontaneous
  Country: GB (occurrence: None)
  Receive Date: 20140114
  Receipt Date: 20140114
  Transmission Date: 20141002
  Serious: Yes (Disabling)
  Sender: FDA-Public Use
  Company Number: AUR-APL-2014-00160

PATIENT
  Age: 40 Year
  Sex: Female

DRUGS (4)
  1. QUETIAPINE (QUETIAPINE) [Suspect]
     Indication: DEPRESSION
     Dosage: (50 MG, 1 D), ORAL
     Route: 048
     Dates: start: 201111, end: 201303
  2. MIRTAZAPINE (MIRTAZAPINE) [Concomitant]
  3. TEGRETOL (CARBAMAZEPINE) UNKNOWN [Concomitant]
  4. VENLAFAXINE (VENLAFAXINE) [Concomitant]

REACTIONS (4)
  - Tardive dyskinesia [None]
  - Dysarthria [None]
  - Impaired work ability [None]
  - Grimacing [None]
